FAERS Safety Report 16580449 (Version 2)
Quarter: 2019Q3

REPORT INFORMATION
  Report Type: Spontaneous
  Country: JP (occurrence: JP)
  Receive Date: 20190716
  Receipt Date: 20190722
  Transmission Date: 20191004
  Serious: Yes (Hospitalization)
  Sender: FDA-Public Use
  Company Number: PHHY2019JP164036

PATIENT
  Age: 49 Year
  Sex: Female

DRUGS (2)
  1. ARGATROBAN. [Suspect]
     Active Substance: ARGATROBAN
     Dosage: 60 MG, QD  (10MG/2ML)
     Route: 041
  2. ARGATROBAN. [Suspect]
     Active Substance: ARGATROBAN
     Indication: CAROTID ARTERY STENOSIS
     Dosage: 10 MG, QD (10MG/2ML)
     Route: 041

REACTIONS (2)
  - Cerebral haemorrhage [Unknown]
  - Cerebral hyperperfusion syndrome [Unknown]
